FAERS Safety Report 7253464 (Version 2)
Quarter: 2014Q2

REPORT INFORMATION
  Report Type: Spontaneous
  Country: US (occurrence: US)
  Receive Date: 20100124
  Receipt Date: 20140408
  Transmission Date: 20141212
  Serious: Yes (Other)
  Sender: FDA-Public Use
  Company Number: US-ALEXION-A200900922

PATIENT
  Age: 66 Year
  Sex: Male

DRUGS (7)
  1. SOLIRIS [Suspect]
     Indication: PAROXYSMAL NOCTURNAL HAEMOGLOBINURIA
     Dosage: 600 MG, SINGLE
     Route: 042
     Dates: start: 20090126, end: 20090126
  2. SOLIRIS [Suspect]
     Dosage: 600 MG, QW
     Route: 042
     Dates: start: 200902, end: 200903
  3. SOLIRIS [Suspect]
     Dosage: 900 MG, Q2W
     Route: 042
     Dates: start: 200903
  4. ALTACE [Concomitant]
  5. LIPITOR [Concomitant]
  6. TOPROL XL [Concomitant]
  7. LASIX                              /00032601/ [Concomitant]

REACTIONS (8)
  - Haemoglobin decreased [Unknown]
  - Mood altered [Unknown]
  - Haemochromatosis [Not Recovered/Not Resolved]
  - Anger [Unknown]
  - Irritability [Unknown]
  - Memory impairment [Unknown]
  - Repetitive speech [Unknown]
  - Anxiety [Unknown]
